FAERS Safety Report 5787114-9 (Version None)
Quarter: 2008Q2

REPORT INFORMATION
  Report Type: 
  Country: None (occurrence: None)
  Receive Date: 20080623
  Receipt Date: 20080623
  Transmission Date: 20081010
  Serious: Yes (Hospitalization)
  Sender: FDA-Public Use
  Company Number: None

PATIENT
  Age: 52 Year
  Sex: Male

DRUGS (2)
  1. OSMOPREP [Suspect]
     Indication: COLONOSCOPY
     Dosage: PER STD COLONOSCOPY PROTOCOL
     Dates: start: 20080127, end: 20080127
  2. YELLOW MAGNESIUM CITRATE SOLN [Suspect]

REACTIONS (7)
  - BACK PAIN [None]
  - CHILLS [None]
  - DIARRHOEA [None]
  - DYSPHAGIA [None]
  - DYSPNOEA [None]
  - FLUSHING [None]
  - RASH PRURITIC [None]
